FAERS Safety Report 21712257 (Version 1)
Quarter: 2022Q4

REPORT INFORMATION
  Report Type: Spontaneous
  Country: US (occurrence: US)
  Receive Date: 20221212
  Receipt Date: 20221212
  Transmission Date: 20230113
  Serious: No
  Sender: FDA-Public Use
  Company Number: US-TEVA-2022-US-2833407

PATIENT
  Age: 51 Year
  Sex: Female

DRUGS (3)
  1. QVAR [Suspect]
     Active Substance: BECLOMETHASONE DIPROPIONATE
     Indication: Hypersensitivity
     Dosage: 120 SPRAYS, ONCE A DAY
     Route: 065
     Dates: start: 20180101, end: 20221120
  2. QVAR [Suspect]
     Active Substance: BECLOMETHASONE DIPROPIONATE
  3. QVAR [Suspect]
     Active Substance: BECLOMETHASONE DIPROPIONATE

REACTIONS (2)
  - Sinusitis [Unknown]
  - Device malfunction [Unknown]

NARRATIVE: CASE EVENT DATE: 20221101
